FAERS Safety Report 10681949 (Version 1)
Quarter: 2014Q4

REPORT INFORMATION
  Report Type: Spontaneous
  Country: US (occurrence: None)
  Receive Date: 20141229
  Receipt Date: 20141229
  Transmission Date: 20150529
  Serious: Yes (Hospitalization)
  Sender: FDA-Public Use
  Company Number: None

PATIENT
  Age: 31 Year
  Sex: Male
  Weight: 86 kg

DRUGS (1)
  1. REMICADE [Suspect]
     Active Substance: INFLIXIMAB
     Indication: ENTERITIS
     Route: 042
     Dates: start: 20141217

REACTIONS (7)
  - Chills [None]
  - Feeling cold [None]
  - Vomiting [None]
  - Nausea [None]
  - Infusion related reaction [None]
  - Malaise [None]
  - Epistaxis [None]

NARRATIVE: CASE EVENT DATE: 20141217
